FAERS Safety Report 4526592-X (Version None)
Quarter: 2004Q4

REPORT INFORMATION
  Report Type: 
  Country: None (occurrence: None)
  Receive Date: 20041213
  Receipt Date: 20041126
  Transmission Date: 20050328
  Serious: Yes (Life-Threatening)
  Sender: FDA-Public Use
  Company Number: 2004-BP-04321NB

PATIENT
  Age: 70 Year
  Sex: Female

DRUGS (8)
  1. MICARDIS [Suspect]
     Indication: ESSENTIAL HYPERTENSION
     Dosage: 40 MG, PO
     Route: 048
     Dates: start: 20030930, end: 20040203
  2. NORVASC [Concomitant]
  3. EUGLUCON (GLIBENCLAMIDE) [Concomitant]
  4. GASTER (FAMOTIDINE) [Concomitant]
  5. PENFILL R (INSULIN HUMAN) [Concomitant]
  6. DEPAS (ETIZOLAM) [Concomitant]
  7. ATARAX [Concomitant]
  8. PURSENNID [Concomitant]

REACTIONS (1)
  - ACUTE MYOCARDIAL INFARCTION [None]
